FAERS Safety Report 16562642 (Version 1)
Quarter: 2019Q3

REPORT INFORMATION
  Report Type: Spontaneous
  Country: US (occurrence: US)
  Receive Date: 20190711
  Receipt Date: 20190711
  Transmission Date: 20191004
  Serious: Yes (Other)
  Sender: FDA-Public Use
  Company Number: US-NAPPMUNDI-USA-2019-0147239

PATIENT
  Age: 60 Year
  Sex: Male

DRUGS (3)
  1. BUTRANS [Suspect]
     Active Substance: BUPRENORPHINE
     Indication: ARTHRALGIA
     Dosage: 5 MCG/HR, WEEKLY
     Route: 062
     Dates: start: 20190325, end: 20190503
  2. BUTRANS [Suspect]
     Active Substance: BUPRENORPHINE
     Indication: SPINAL PAIN
  3. BUTRANS [Suspect]
     Active Substance: BUPRENORPHINE
     Indication: PAIN

REACTIONS (25)
  - Suspected product tampering [Unknown]
  - Ear discomfort [Not Recovered/Not Resolved]
  - Malaise [Not Recovered/Not Resolved]
  - Ear pain [Not Recovered/Not Resolved]
  - Gait disturbance [Not Recovered/Not Resolved]
  - Head discomfort [Not Recovered/Not Resolved]
  - Confusional state [Not Recovered/Not Resolved]
  - Drug withdrawal syndrome [Unknown]
  - Feeling drunk [Not Recovered/Not Resolved]
  - Hyperventilation [Unknown]
  - Lethargy [Not Recovered/Not Resolved]
  - Chest pain [Not Recovered/Not Resolved]
  - Dizziness [Not Recovered/Not Resolved]
  - Hallucination [Recovered/Resolved]
  - Chest discomfort [Not Recovered/Not Resolved]
  - Toxicity to various agents [Unknown]
  - Irritability [Not Recovered/Not Resolved]
  - Sleep apnoea syndrome [Not Recovered/Not Resolved]
  - Blood pressure increased [Not Recovered/Not Resolved]
  - Presyncope [Unknown]
  - Headache [Not Recovered/Not Resolved]
  - Euphoric mood [Recovered/Resolved]
  - Therapeutic product effect decreased [Unknown]
  - Unevaluable event [Not Recovered/Not Resolved]
  - Thinking abnormal [Not Recovered/Not Resolved]

NARRATIVE: CASE EVENT DATE: 20190426
